FAERS Safety Report 9337950 (Version 2)
Quarter: 2013Q3

REPORT INFORMATION
  Report Type: Spontaneous
  Country: BR (occurrence: BR)
  Receive Date: 20130609
  Receipt Date: 20130705
  Transmission Date: 20140515
  Serious: No
  Sender: FDA-Public Use
  Company Number: PHHY2013BR057832

PATIENT
  Sex: Female

DRUGS (4)
  1. ACLASTA [Suspect]
     Indication: OSTEOPOROSIS
     Dosage: 5 MG, PER YEAR
     Route: 042
     Dates: start: 2011
  2. PURAN T4 [Concomitant]
     Indication: HYPOTHYROIDISM
     Dosage: 5 MG, 1 TABLET, DAILY
     Route: 048
  3. CALCIO D3 [Concomitant]
     Indication: BONE DENSITY DECREASED
     Dosage: 1 TABLET, DAILY
     Route: 048
  4. ADDERA D3 [Concomitant]
     Indication: VITAMIN D DECREASED
     Dosage: 60 DROPS, PER MONTH
     Route: 048

REACTIONS (3)
  - Mouth injury [Unknown]
  - Drug hypersensitivity [Unknown]
  - Wound [Recovered/Resolved]
